FAERS Safety Report 7473321-6 (Version None)
Quarter: 2011Q2

REPORT INFORMATION
  Report Type: 
  Country: None (occurrence: None)
  Receive Date: 20110503
  Receipt Date: 20110418
  Transmission Date: 20111010
  Serious: Yes (Hospitalization)
  Sender: FDA-Public Use
  Company Number: 030198

PATIENT
  Sex: Male
  Weight: 65.8 kg

DRUGS (2)
  1. KEPPRA [Suspect]
     Indication: PARTIAL SEIZURES
     Dosage: (1000 MG, TWO TABLETS OF 500 MG PER DAY ORAL)
     Route: 048
  2. KEPPRA [Suspect]
     Indication: MUSCLE TWITCHING
     Dosage: (1000 MG, TWO TABLETS OF 500 MG PER DAY ORAL)
     Route: 048

REACTIONS (5)
  - FALL [None]
  - ASTHENIA [None]
  - DIET REFUSAL [None]
  - OESOPHAGEAL ULCER [None]
  - CONFUSIONAL STATE [None]
